FAERS Safety Report 11080259 (Version 7)
Quarter: 2015Q2

REPORT INFORMATION
  Report Type: Report from Study
  Country: IT (occurrence: IT)
  Receive Date: 20150430
  Receipt Date: 20150527
  Transmission Date: 20150821
  Serious: Yes (Hospitalization)
  Sender: FDA-Public Use
  Company Number: IT-B.I. PHARMACEUTICALS,INC./RIDGEFIELD-2015-BI-19318BI

PATIENT
  Age: 52 Year
  Sex: Female
  Weight: 77 kg

DRUGS (7)
  1. BIBF 1120 [Suspect]
     Active Substance: NINTEDANIB
     Indication: FOLLICULAR THYROID CANCER
     Dosage: 800 MG
     Route: 048
     Dates: start: 20150130, end: 20150327
  2. BIBF 1120 [Suspect]
     Active Substance: NINTEDANIB
     Route: 048
     Dates: start: 20150416
  3. EUTIROX [Concomitant]
     Active Substance: LEVOTHYROXINE SODIUM
     Indication: HYPOTHYROIDISM
     Dosage: 100 MCG
     Route: 048
  4. OMEPRAZOLE. [Concomitant]
     Active Substance: OMEPRAZOLE
     Indication: GASTRITIS PROPHYLAXIS
     Dosage: 20 MG
     Route: 048
     Dates: end: 20150407
  5. FENTANYL. [Concomitant]
     Active Substance: FENTANYL
     Dosage: 25 MG
     Route: 065
     Dates: start: 20150226
  6. FENTANYL. [Concomitant]
     Active Substance: FENTANYL
     Indication: PAIN PROPHYLAXIS
     Dosage: 4 MCG
     Route: 062
     Dates: start: 20150130, end: 20150225
  7. AUGMENTIN [Concomitant]
     Active Substance: AMOXICILLIN\CLAVULANATE POTASSIUM
     Indication: INFECTION PROPHYLAXIS
     Dosage: 2 G
     Route: 048
     Dates: start: 20150327, end: 20150403

REACTIONS (1)
  - Cholecystitis [Recovered/Resolved]

NARRATIVE: CASE EVENT DATE: 20150327
